FAERS Safety Report 13602922 (Version 1)
Quarter: 2017Q2

REPORT INFORMATION
  Report Type: Report from Study
  Country: None (occurrence: BR)
  Receive Date: 20170601
  Receipt Date: 20170601
  Transmission Date: 20170830
  Serious: Yes (Hospitalization)
  Sender: FDA-Public Use
  Company Number: BR-ABBVIE-17P-020-1993955-00

PATIENT
  Sex: Male
  Weight: 58 kg

DRUGS (7)
  1. SALOFAN [Concomitant]
     Indication: PRODUCT USED FOR UNKNOWN INDICATION
     Dosage: DAILY DOSE: 1 TAB AFTER BREAKFAST
     Route: 048
  2. PROLOPA [Concomitant]
     Active Substance: BENSERAZIDE\LEVODOPA
     Indication: PRODUCT USED FOR UNKNOWN INDICATION
     Dosage: DAILY DOSE: 1 TAB (200/50 MG)
     Route: 048
  3. BROMHEXINE HYDROCHLORIDE [Concomitant]
     Active Substance: BROMHEXINE HYDROCHLORIDE
     Indication: PRODUCT USED FOR UNKNOWN INDICATION
     Route: 048
  4. ENSURE [Concomitant]
     Active Substance: AMINO ACIDS\DEXTROSE\ELECTROLYTES NOS\SOYBEAN OIL\VITAMINS
     Indication: PRODUCT USED FOR UNKNOWN INDICATION
     Dosage: DAILY DOSE: POWDER FOR SOLUTION, 1 GLASS AFTER BREAKFAST
     Route: 048
  5. ENTACAPONE. [Concomitant]
     Active Substance: ENTACAPONE
     Indication: PARKINSON^S DISEASE
     Dosage: DAILY DOSE 1 TAB (200/50 MG)
     Route: 048
  6. SYNTHROID [Suspect]
     Active Substance: LEVOTHYROXINE SODIUM
     Indication: HYPOTHYROIDISM
     Route: 048
  7. PROLOPA HBS [Concomitant]
     Active Substance: BENSERAZIDE\LEVODOPA
     Indication: PRODUCT USED FOR UNKNOWN INDICATION
     Dosage: DAILY DOSE; 1 TAB (100/25 MG) AT BEDTIME
     Route: 048

REACTIONS (2)
  - Urinary tract infection [Unknown]
  - Diarrhoea [Unknown]
